FAERS Safety Report 6962706-X (Version None)
Quarter: 2010Q3

REPORT INFORMATION
  Report Type: 
  Country: None (occurrence: None)
  Receive Date: 20100902
  Receipt Date: 20100825
  Transmission Date: 20110219
  Serious: Yes (Other)
  Sender: FDA-Public Use
  Company Number: SE-PFIZER INC-2010107462

PATIENT
  Sex: Female

DRUGS (3)
  1. ZOLOFT [Suspect]
     Dosage: 100 MG, 2X/DAY
     Dates: start: 20100501
  2. POLYGAM S/D [Concomitant]
     Dosage: UNK, WEEKLY
  3. AVELOX [Concomitant]
     Dosage: UNK

REACTIONS (3)
  - HYPERHIDROSIS [None]
  - PNEUMONIA [None]
  - PYREXIA [None]
